FAERS Safety Report 6416784-7 (Version None)
Quarter: 2009Q4

REPORT INFORMATION
  Report Type: 
  Country: None (occurrence: None)
  Receive Date: 20091022
  Receipt Date: 20091007
  Transmission Date: 20100525
  Serious: Yes (Other)
  Sender: FDA-Public Use
  Company Number: 2009003067

PATIENT
  Age: 72 Year
  Sex: Female

DRUGS (4)
  1. TARCEVA [Suspect]
     Indication: BREAST CANCER
     Dosage: (50 MG, 1D), ORAL
     Route: 048
  2. TRASTUZUMAB (TRASTUZUMAB) [Suspect]
     Indication: BREAST CANCER
     Dosage: (4 MG/KG, 1 IN 1 WK), INTRAVENOUS
     Route: 042
  3. DOXORUBICIN HCL [Concomitant]
  4. TAXANE-BASED CHEMOTHERAPY [Concomitant]

REACTIONS (2)
  - CARDIAC FAILURE CONGESTIVE [None]
  - EJECTION FRACTION DECREASED [None]
